FAERS Safety Report 9222185 (Version 1)
Quarter: 2013Q2

REPORT INFORMATION
  Report Type: Spontaneous
  Country: GB (occurrence: GB)
  Receive Date: 20130410
  Receipt Date: 20130410
  Transmission Date: 20140414
  Serious: Yes (Other)
  Sender: FDA-Public Use
  Company Number: PHFR2013GB002075

PATIENT
  Sex: 0

DRUGS (1)
  1. DESFERAL [Suspect]
     Dosage: UNK

REACTIONS (1)
  - Blood copper decreased [Unknown]
